FAERS Safety Report 4654941-0 (Version None)
Quarter: 2005Q2

REPORT INFORMATION
  Report Type: 
  Country: None (occurrence: None)
  Receive Date: 20050506
  Receipt Date: 20041021
  Transmission Date: 20051028
  Serious: Yes (Death, Hospitalization)
  Sender: FDA-Public Use
  Company Number: PHHO2004AR14934

PATIENT
  Age: 63 Year
  Sex: Male

DRUGS (3)
  1. ERL080A [Suspect]
     Indication: RENAL TRANSPLANT
     Dosage: 720 MG, BID
     Route: 048
     Dates: start: 20040811, end: 20041020
  2. NEORAL [Suspect]
     Indication: RENAL TRANSPLANT
     Dosage: 400 MG/DAY
     Route: 048
     Dates: start: 20041005
  3. PREDNISONE TAB [Suspect]
     Indication: RENAL TRANSPLANT
     Dosage: 20 MG, QD
     Route: 048
     Dates: start: 20040825

REACTIONS (15)
  - ABASIA [None]
  - AMERICAN TRYPANOSOMIASIS [None]
  - ARTHRALGIA [None]
  - BACTERIAL INFECTION [None]
  - CONVULSION [None]
  - CYTOMEGALOVIRUS INFECTION [None]
  - HYPOTENSION [None]
  - JOINT EFFUSION [None]
  - LIFE SUPPORT [None]
  - LUNG INFECTION [None]
  - PAIN IN EXTREMITY [None]
  - PYREXIA [None]
  - RENAL IMPAIRMENT [None]
  - RENAL TUBULAR NECROSIS [None]
  - SEPSIS [None]
